FAERS Safety Report 8904055 (Version 3)
Quarter: 2015Q1

REPORT INFORMATION
  Report Type: Spontaneous
  Country: US (occurrence: US)
  Receive Date: 20121112
  Receipt Date: 20150312
  Transmission Date: 20150721
  Serious: No
  Sender: FDA-Public Use
  Company Number: US-ASTRAZENECA-2012SE80205

PATIENT
  Age: 31564 Day
  Sex: Female

DRUGS (3)
  1. SYMBICORT [Suspect]
     Active Substance: BUDESONIDE\FORMOTEROL FUMARATE DIHYDRATE
     Indication: CHRONIC OBSTRUCTIVE PULMONARY DISEASE
     Dosage: 160/4.5 MCG ,2 PUFFS BID
     Route: 055
     Dates: end: 201502
  2. SYMBICORT [Suspect]
     Active Substance: BUDESONIDE\FORMOTEROL FUMARATE DIHYDRATE
     Indication: CHRONIC OBSTRUCTIVE PULMONARY DISEASE
     Dosage: 160/4.5 MCG ,2 PUFFS BID
     Route: 055
  3. PREDNISOLONE. [Concomitant]
     Active Substance: PREDNISOLONE

REACTIONS (9)
  - Lung disorder [Unknown]
  - Multiple allergies [Unknown]
  - Pharyngeal disorder [Unknown]
  - Body height decreased [Unknown]
  - Dysphonia [Unknown]
  - Nervous system disorder [Unknown]
  - Lung infection [Unknown]
  - Drug dose omission [Not Recovered/Not Resolved]
  - Weight fluctuation [Unknown]

NARRATIVE: CASE EVENT DATE: 201502
